FAERS Safety Report 7005342-1 (Version None)
Quarter: 2010Q3

REPORT INFORMATION
  Report Type: 
  Country: None (occurrence: None)
  Receive Date: 20100921
  Receipt Date: 20100913
  Transmission Date: 20110219
  Serious: Yes (Death)
  Sender: FDA-Public Use
  Company Number: JP-JNJFOC-20100804398

PATIENT
  Sex: Female
  Weight: 64 kg

DRUGS (16)
  1. DUROTEP MT [Suspect]
     Indication: HEPATIC NEOPLASM MALIGNANT
     Route: 062
  2. DUROTEP MT [Suspect]
     Route: 062
  3. DUROTEP MT [Suspect]
     Route: 062
  4. DUROTEP MT [Suspect]
     Route: 062
  5. DUROTEP MT [Suspect]
     Route: 062
  6. RISPERDAL [Concomitant]
     Indication: DELIRIUM
     Route: 048
  7. LASIX [Concomitant]
     Route: 048
  8. MONILAC [Concomitant]
     Indication: HEPATIC CIRRHOSIS
     Route: 048
  9. ALDACTONE [Concomitant]
     Indication: HEPATIC CIRRHOSIS
     Route: 048
  10. MAGLAX [Concomitant]
     Indication: HEPATIC CIRRHOSIS
     Route: 048
  11. HALCION [Concomitant]
     Indication: DELIRIUM
     Route: 048
  12. OXYCODONE HCL [Concomitant]
     Route: 065
  13. AMINOLEBAN EN [Concomitant]
     Indication: HEPATIC CIRRHOSIS
     Route: 048
  14. TAKEPRON [Concomitant]
     Indication: HEPATIC CIRRHOSIS
     Route: 048
  15. CALONAL [Concomitant]
     Indication: HEPATIC NEOPLASM MALIGNANT
     Route: 048
  16. AMOXICILLIN TRIHYDRATE [Concomitant]
     Indication: CELLULITIS
     Route: 048

REACTIONS (3)
  - APPLICATION SITE BLEEDING [None]
  - HEPATIC NEOPLASM MALIGNANT [None]
  - RASH [None]
